FAERS Safety Report 19565471 (Version 1)
Quarter: 2021Q3

REPORT INFORMATION
  Report Type: Spontaneous
  Country: US (occurrence: US)
  Receive Date: 20210716
  Receipt Date: 20210716
  Transmission Date: 20211014
  Serious: No
  Sender: FDA-Public Use
  Company Number: US-GLAXOSMITHKLINE-US2021151898

PATIENT
  Age: 22 Year
  Sex: Female

DRUGS (1)
  1. ADVAIR DISKUS [Suspect]
     Active Substance: FLUTICASONE PROPIONATE\SALMETEROL XINAFOATE
     Indication: ASTHMA
     Dosage: ADVAIR DISKUS 100/50MCG (GREEN)60^SUSE 1 INHALATION BY MOUTH TWICE DAILY
     Dates: start: 201301

REACTIONS (3)
  - Insomnia [Unknown]
  - Product dose omission issue [Not Recovered/Not Resolved]
  - Dyspnoea [Unknown]

NARRATIVE: CASE EVENT DATE: 20210711
